FAERS Safety Report 4456802-9 (Version None)
Quarter: 2004Q3

REPORT INFORMATION
  Report Type: 
  Country: None (occurrence: None)
  Receive Date: 20040921
  Receipt Date: 20040913
  Transmission Date: 20050211
  Serious: Yes (Death, Hospitalization, Other)
  Sender: FDA-Public Use
  Company Number: US-JNJFOC-20040903559

PATIENT
  Age: 17 Year
  Sex: Female

DRUGS (3)
  1. CYCLOBENZAPRINE (CYCLOBENZAPRINE HYDROCHLORIDE) UNKNOWN [Suspect]
     Indication: SUICIDE ATTEMPT
     Dosage: ORAL
     Route: 048
  2. BENZONATATE (BENZONATATE) [Suspect]
     Indication: SUICIDE ATTEMPT
     Dosage: ORAL
     Route: 048
  3. DEXTROMETHORPIN/GUAIFENESIN (GUAIFENESIN W;DEXTROMETHORPHAN) [Suspect]
     Indication: SUICIDE ATTEMPT
     Dosage: ORAL
     Route: 048

REACTIONS (20)
  - ALANINE AMINOTRANSFERASE INCREASED [None]
  - ANOXIC ENCEPHALOPATHY [None]
  - ANURIA [None]
  - ASPARTATE AMINOTRANSFERASE INCREASED [None]
  - BLOOD PH DECREASED [None]
  - BLOOD SODIUM INCREASED [None]
  - BRAIN DEATH [None]
  - BRAIN OEDEMA [None]
  - CONVULSION [None]
  - ELECTROCARDIOGRAM QRS COMPLEX PROLONGED [None]
  - HEPATIC CONGESTION [None]
  - HEPATIC HAEMORRHAGE [None]
  - HYPOTENSION [None]
  - LOSS OF CONSCIOUSNESS [None]
  - PCO2 DECREASED [None]
  - PO2 INCREASED [None]
  - PULMONARY OEDEMA [None]
  - PULSE ABSENT [None]
  - UNRESPONSIVE TO PAIN STIMULI [None]
  - VOMITING [None]
